FAERS Safety Report 9339136 (Version 4)
Quarter: 2013Q4

REPORT INFORMATION
  Report Type: Spontaneous
  Country: IT (occurrence: IT)
  Receive Date: 20130610
  Receipt Date: 20131107
  Transmission Date: 20140711
  Serious: Yes (Other)
  Sender: FDA-Public Use
  Company Number: IT-EISAI INC-E7389-03883-SPO-IT

PATIENT
  Age: 39 Year
  Sex: Female
  Weight: 56 kg

DRUGS (5)
  1. HALAVEN [Suspect]
     Indication: BREAST CANCER RECURRENT
     Route: 041
     Dates: start: 20130228, end: 20130228
  2. HALAVEN [Suspect]
     Route: 041
     Dates: start: 20130308, end: 20130510
  3. ONDANSETRON [Concomitant]
     Indication: PROPHYLAXIS OF NAUSEA AND VOMITING
     Route: 042
     Dates: start: 20130228, end: 20130510
  4. RANIDIL [Concomitant]
     Route: 042
     Dates: start: 20130228, end: 20130510
  5. SOLDESAM [Concomitant]
     Indication: PROPHYLAXIS OF NAUSEA AND VOMITING
     Route: 042
     Dates: start: 20130228, end: 20130510

REACTIONS (5)
  - Blood alkaline phosphatase increased [Recovering/Resolving]
  - Hypertransaminasaemia [Recovering/Resolving]
  - Constipation [Unknown]
  - Formication [Unknown]
  - Stomatitis [Unknown]
